FAERS Safety Report 24558829 (Version 1)
Quarter: 2024Q4

REPORT INFORMATION
  Report Type: Spontaneous
  Country: CN (occurrence: CN)
  Receive Date: 20241029
  Receipt Date: 20241029
  Transmission Date: 20250114
  Serious: Yes (Other)
  Sender: DR REDDYS
  Company Number: CN-BLG-LIT/CHN/24/0015987

PATIENT
  Age: 75 Year
  Sex: Male

DRUGS (4)
  1. LENALIDOMIDE [Suspect]
     Active Substance: LENALIDOMIDE
     Indication: Diffuse large B-cell lymphoma
     Dosage: 25 MG OF LENALIDOMIDE ORALLY ON DAYS 2-15 (6 CYCLES)
     Route: 048
  2. ORELABRUTINIB [Suspect]
     Active Substance: ORELABRUTINIB
     Indication: Diffuse large B-cell lymphoma
     Dosage: 150 MG OF ORELABRUTINIB ORALLY AND CONSISTENTLY THROUGHOUT EACH 21-DAY CYCLE (6 CYCLES)
     Route: 048
  3. RITUXIMAB [Suspect]
     Active Substance: RITUXIMAB
     Indication: Diffuse large B-cell lymphoma
     Dosage: RITUXIMAB (375 MG /M2) INTRAVENOUSLY ON DAY + 1 (6 CYCLES)
     Route: 042
  4. COTRIMOXAZOLE [Concomitant]
     Active Substance: SULFAMETHOXAZOLE\TRIMETHOPRIM
     Indication: Prophylaxis
     Dosage: TMP 0.16 G/SMX 0.8 G, DAILY

REACTIONS (3)
  - Atrial flutter [Unknown]
  - Arrhythmia [Unknown]
  - Product use in unapproved indication [Unknown]
